FAERS Safety Report 25589252 (Version 1)
Quarter: 2025Q3

REPORT INFORMATION
  Report Type: Spontaneous
  Country: US (occurrence: US)
  Receive Date: 20250722
  Receipt Date: 20250722
  Transmission Date: 20251020
  Serious: Yes (Other)
  Sender: AUROBINDO
  Company Number: US-AUROBINDO-AUR-APL-2025-036572

PATIENT
  Age: 67 Year
  Sex: Female

DRUGS (3)
  1. HYDROCHLOROTHIAZIDE [Suspect]
     Active Substance: HYDROCHLOROTHIAZIDE
     Indication: Product used for unknown indication
  2. METHYLPREDNISOLONE SODIUM SUCCINATE [Suspect]
     Active Substance: METHYLPREDNISOLONE SODIUM SUCCINATE
     Indication: Antineutrophil cytoplasmic antibody
     Route: 042
  3. PREDNISONE [Suspect]
     Active Substance: PREDNISONE
     Indication: Antineutrophil cytoplasmic antibody
     Route: 065

REACTIONS (8)
  - Atrial fibrillation [Unknown]
  - Photosensitivity reaction [Recovered/Resolved]
  - Rash erythematous [Recovered/Resolved]
  - Insomnia [Unknown]
  - Disturbance in attention [Unknown]
  - Hyperphagia [Unknown]
  - Swelling face [Unknown]
  - Tremor [Unknown]
